FAERS Safety Report 8316879-7 (Version None)
Quarter: 2012Q2

REPORT INFORMATION
  Report Type: 
  Country: None (occurrence: None)
  Receive Date: 20120427
  Receipt Date: 20120419
  Transmission Date: 20120825
  Serious: Yes (Other)
  Sender: FDA-Public Use
  Company Number: US-BAYER-2011-123171

PATIENT
  Age: 34 Year
  Sex: Female

DRUGS (7)
  1. PROAIR HFA [Concomitant]
     Dosage: 2 PUFF(S),Q4HR AS NEEDED
     Route: 045
  2. XANAX [Concomitant]
     Dosage: 0.25 MG, QD AS NEEDED
     Route: 048
  3. PERCOCET [Concomitant]
  4. CIPROFLOXACIN HCL [Concomitant]
  5. SINGULAIR [Concomitant]
     Dosage: 10 MG, QD
     Route: 048
  6. YAZ [Suspect]
     Indication: CONTRACEPTION
     Dosage: UNK
     Dates: start: 20090901, end: 20100614
  7. PROZAC [Concomitant]
     Dosage: 20 MG, QD
     Route: 048

REACTIONS (4)
  - CHOLELITHIASIS [None]
  - NAUSEA [None]
  - ABDOMINAL PAIN [None]
  - GALLBLADDER POLYP [None]
